FAERS Safety Report 7706383-9 (Version None)
Quarter: 2011Q3

REPORT INFORMATION
  Report Type: 
  Country: None (occurrence: None)
  Receive Date: 20110818
  Receipt Date: 20110804
  Transmission Date: 20111222
  Serious: Yes (Hospitalization, Other)
  Sender: FDA-Public Use
  Company Number: 2011P1008186

PATIENT
  Age: 40 Year
  Sex: Male

DRUGS (10)
  1. TRAMADOL HYDROCHLORIDE [Suspect]
     Indication: PAIN
     Dosage: 100 MG, PO
     Route: 048
     Dates: start: 20100823
  2. SUTENT [Suspect]
     Indication: ANGIOSARCOMA
     Dosage: 50 MG, QD, PO
     Route: 048
     Dates: start: 20100712
  3. MOVIPREP [Concomitant]
  4. FENTANYL [Suspect]
     Indication: PAIN
     Dosage: 1 PATCH, PRN, TDER
     Route: 062
     Dates: start: 20100201, end: 20100902
  5. TRAZODONE HCL [Concomitant]
  6. TAXOL [Concomitant]
  7. ZANTAC [Concomitant]
  8. RIMPERAN [Concomitant]
  9. MORPHINE SULFATE [Suspect]
     Indication: PAIN
     Dosage: 10 MG, PO
     Route: 048
     Dates: start: 20100819
  10. XANAX [Concomitant]

REACTIONS (12)
  - VOMITING [None]
  - CONSTIPATION [None]
  - METASTASES TO BONE [None]
  - INTESTINAL PERFORATION [None]
  - AGITATION [None]
  - PELVIC ABSCESS [None]
  - COLECTOMY [None]
  - FEMUR FRACTURE [None]
  - LOWER LIMB FRACTURE [None]
  - NAUSEA [None]
  - OVERDOSE [None]
  - ANXIETY [None]
